FAERS Safety Report 6642406-6 (Version None)
Quarter: 2010Q1

REPORT INFORMATION
  Report Type: 
  Country: None (occurrence: None)
  Receive Date: 20100319
  Receipt Date: 20100309
  Transmission Date: 20100710
  Serious: Yes (Other)
  Sender: FDA-Public Use
  Company Number: US-ROCHE-691458

PATIENT
  Age: 65 Year
  Sex: Male

DRUGS (2)
  1. TAMIFLU [Suspect]
     Route: 065
  2. AMANTADINE HCL [Concomitant]

REACTIONS (1)
  - HALLUCINATION [None]
